FAERS Safety Report 11068679 (Version 1)
Quarter: 2015Q2

REPORT INFORMATION
  Report Type: Spontaneous
  Country: US (occurrence: US)
  Receive Date: 20150427
  Receipt Date: 20150427
  Transmission Date: 20150821
  Serious: No
  Sender: FDA-Public Use
  Company Number: US-PFIZER INC-2015142696

PATIENT
  Age: 28 Year
  Sex: Female

DRUGS (3)
  1. BIAXIN [Suspect]
     Active Substance: CLARITHROMYCIN
     Dosage: UNK
  2. NEURONTIN [Suspect]
     Active Substance: GABAPENTIN
     Dosage: UNK
  3. IMITREX [Suspect]
     Active Substance: SUMATRIPTAN\SUMATRIPTAN SUCCINATE
     Dosage: UNK

REACTIONS (1)
  - Drug hypersensitivity [Unknown]
